FAERS Safety Report 15381201 (Version 2)
Quarter: 2018Q4

REPORT INFORMATION
  Report Type: Spontaneous
  Country: US (occurrence: US)
  Receive Date: 20180913
  Receipt Date: 20181126
  Transmission Date: 20190204
  Serious: Yes (Other)
  Sender: FDA-Public Use
  Company Number: US-ASTELLAS-2018US029738

PATIENT
  Sex: Male

DRUGS (2)
  1. XTANDI [Suspect]
     Active Substance: ENZALUTAMIDE
     Indication: PROSTATE CANCER
     Route: 048
     Dates: start: 20170404
  2. XTANDI [Suspect]
     Active Substance: ENZALUTAMIDE
     Route: 048
     Dates: start: 20180129

REACTIONS (14)
  - Decreased appetite [Unknown]
  - Amnesia [Unknown]
  - Gait disturbance [Unknown]
  - Abdominal pain upper [Unknown]
  - Constipation [Unknown]
  - Balance disorder [Unknown]
  - Feeling hot [Not Recovered/Not Resolved]
  - Paraesthesia [Unknown]
  - Back pain [Unknown]
  - Peripheral swelling [Unknown]
  - Malignant neoplasm progression [Unknown]
  - Vision blurred [Unknown]
  - Weight decreased [Unknown]
  - Insomnia [Unknown]
